FAERS Safety Report 8377579-0 (Version None)
Quarter: 2012Q2

REPORT INFORMATION
  Report Type: 
  Country: None (occurrence: None)
  Receive Date: 20120522
  Receipt Date: 20120509
  Transmission Date: 20120825
  Serious: No
  Sender: FDA-Public Use
  Company Number: US-ASTRAZENECA-2012SE29836

PATIENT
  Age: 37 Year
  Sex: Female
  Weight: 72.6 kg

DRUGS (12)
  1. SEROQUEL [Suspect]
     Indication: SLEEP DISORDER
     Route: 048
  2. SEROQUEL [Suspect]
     Route: 048
     Dates: end: 20120101
  3. SEROQUEL [Suspect]
     Route: 048
     Dates: end: 20120101
  4. SEROQUEL [Suspect]
     Indication: GRANDIOSITY
     Route: 048
  5. SEROQUEL [Suspect]
     Route: 048
     Dates: end: 20120101
  6. SEROQUEL [Suspect]
     Route: 048
     Dates: end: 20120101
  7. SEROQUEL [Suspect]
     Route: 048
     Dates: end: 20120101
  8. SEROQUEL [Suspect]
     Indication: BIPOLAR II DISORDER
     Route: 048
  9. SEROQUEL [Suspect]
     Indication: PSYCHOTIC DISORDER
     Route: 048
  10. SEROQUEL [Suspect]
     Indication: BIPOLAR I DISORDER
     Route: 048
  11. SEROQUEL [Suspect]
     Route: 048
     Dates: end: 20120101
  12. SEROQUEL [Suspect]
     Indication: DEPRESSION
     Route: 048

REACTIONS (4)
  - OFF LABEL USE [None]
  - HEADACHE [None]
  - VISUAL IMPAIRMENT [None]
  - AMBLYOPIA [None]
